FAERS Safety Report 9963623 (Version 1)
Quarter: 2014Q1

REPORT INFORMATION
  Report Type: Spontaneous
  Country: US (occurrence: US)
  Receive Date: 20140305
  Receipt Date: 20140305
  Transmission Date: 20141002
  Serious: Yes (Hospitalization)
  Sender: FDA-Public Use
  Company Number: US-ABBVIE-13P-163-1118328-00

PATIENT
  Sex: Female
  Weight: 58.11 kg

DRUGS (9)
  1. HUMIRA [Suspect]
     Indication: CROHN^S DISEASE
     Dates: start: 201209, end: 201212
  2. HUMIRA [Suspect]
     Dates: start: 201301
  3. HUMIRA [Suspect]
     Indication: CROHN^S DISEASE
     Dates: start: 2003, end: 2005
  4. PANTOPRAZOL [Concomitant]
     Indication: GASTRIC DISORDER
  5. HYOSCYAMINE [Concomitant]
     Indication: GASTRIC DISORDER
  6. REGLAN [Concomitant]
     Indication: NAUSEA
  7. ZOFRAN [Concomitant]
     Indication: NAUSEA
  8. MULTIVITAMIN [Concomitant]
     Indication: PRODUCT USED FOR UNKNOWN INDICATION
  9. BIRTH CONTROL PILL [Concomitant]
     Indication: CONTRACEPTION

REACTIONS (5)
  - Gastric infection [Recovered/Resolved]
  - Gastric infection [Recovered/Resolved]
  - Drug ineffective [Unknown]
  - Crohn^s disease [Recovered/Resolved]
  - Drug ineffective [Recovered/Resolved]
